FAERS Safety Report 10144872 (Version 1)
Quarter: 2014Q2

REPORT INFORMATION
  Report Type: Spontaneous
  Country: US (occurrence: US)
  Receive Date: 20140430
  Receipt Date: 20140430
  Transmission Date: 20141212
  Serious: No
  Sender: FDA-Public Use
  Company Number: US-SANOFI-AVENTIS-2013SA076445

PATIENT
  Age: 57 Year
  Sex: Male

DRUGS (14)
  1. DEMEROL [Suspect]
     Route: 065
  2. ACCUPRIL [Concomitant]
     Route: 048
  3. CLONIDINE [Concomitant]
     Route: 048
  4. COENZYME Q10 [Concomitant]
     Route: 048
  5. COLESEVELAM [Concomitant]
     Route: 048
  6. DIOVANE [Concomitant]
     Route: 048
  7. GLIPIZIDE [Concomitant]
     Route: 048
  8. VICODIN [Concomitant]
     Route: 048
  9. HUMALOG [Concomitant]
     Dosage: DOSE:120 UNIT(S)
  10. JANUVIA [Concomitant]
     Route: 048
  11. METOPROLOL [Concomitant]
     Route: 048
  12. POTASSIUM CHLORIDE [Concomitant]
     Route: 048
  13. ROSUVASTATIN [Concomitant]
     Route: 048
  14. VITAMIN D3 [Concomitant]
     Dosage: DOSE:5000 UNIT(S)
     Route: 048

REACTIONS (1)
  - Hypersensitivity [Unknown]
